FAERS Safety Report 18213570 (Version 3)
Quarter: 2021Q2

REPORT INFORMATION
  Report Type: Spontaneous
  Country: US (occurrence: US)
  Receive Date: 20200831
  Receipt Date: 20210512
  Transmission Date: 20210717
  Serious: No
  Sender: FDA-Public Use
  Company Number: US-PFIZER INC-2019292909

PATIENT
  Age: 72 Year
  Sex: Female
  Weight: 62.6 kg

DRUGS (6)
  1. INLYTA [Suspect]
     Active Substance: AXITINIB
     Dosage: 3 MG, 2X/DAY
     Route: 048
  2. METOPROLOL. [Concomitant]
     Active Substance: METOPROLOL
     Indication: HYPERTENSION
     Dosage: 50 MG, 1X/DAY
  3. INLYTA [Suspect]
     Active Substance: AXITINIB
     Dosage: 3 TABS TWICE A DAY (DOSAGE 6 MG)
  4. AMLODIPINE BESILATE [Concomitant]
     Active Substance: AMLODIPINE BESYLATE
     Indication: HYPERTENSION
     Dosage: 10 MG, 1X/DAY
  5. INLYTA [Suspect]
     Active Substance: AXITINIB
     Dosage: UNK (AN INCREASED DOSAGE)
  6. INLYTA [Suspect]
     Active Substance: AXITINIB
     Indication: RENAL CANCER
     Dosage: 6 MG, DAILY (THREE IN THE MORNING AND THREE AT NIGHT)

REACTIONS (1)
  - Hypertension [Unknown]
